FAERS Safety Report 16311400 (Version 1)
Quarter: 2019Q2

REPORT INFORMATION
  Report Type: Spontaneous
  Country: US (occurrence: US)
  Receive Date: 20190514
  Receipt Date: 20190514
  Transmission Date: 20190711
  Serious: Yes (Other)
  Sender: FDA-Public Use
  Company Number: US-TEVA-2019-US-1048671

PATIENT
  Sex: Female

DRUGS (1)
  1. METFORMIN HYDROCHLORIDE EXTENDED RELEASE TABLET [Suspect]
     Active Substance: METFORMIN HYDROCHLORIDE
     Route: 065
     Dates: start: 201810

REACTIONS (4)
  - Feeling abnormal [Unknown]
  - Haemorrhage [Unknown]
  - Dysgeusia [Unknown]
  - Malaise [Unknown]

NARRATIVE: CASE EVENT DATE: 201901
